FAERS Safety Report 19764205 (Version 1)
Quarter: 2021Q3

REPORT INFORMATION
  Report Type: Spontaneous
  Country: RO (occurrence: RO)
  Receive Date: 20210830
  Receipt Date: 20210830
  Transmission Date: 20211014
  Serious: Yes (Other)
  Sender: FDA-Public Use
  Company Number: RO-MYLANLABS-2021M1056036

PATIENT
  Age: 39 Year
  Sex: Female

DRUGS (6)
  1. PERTUZUMAB. [Suspect]
     Active Substance: PERTUZUMAB
     Indication: BREAST CANCER
     Dosage: 420 MILLIGRAM
     Route: 042
     Dates: start: 20200415, end: 20200617
  2. GOSERELIN [Concomitant]
     Active Substance: GOSERELIN
     Dosage: UNK, QD
  3. TRASTUZUMAB. [Suspect]
     Active Substance: TRASTUZUMAB
     Indication: BREAST CANCER
     Dosage: UNK UNK, Q3W
     Route: 058
  4. KADCYLA [Suspect]
     Active Substance: ADO-TRASTUZUMAB EMTANSINE
     Indication: BREAST CANCER
     Dosage: 4 CYCLES
     Route: 042
     Dates: start: 20200810, end: 20201012
  5. LETROZOLE. [Concomitant]
     Active Substance: LETROZOLE
     Dosage: UNK, QD
  6. KADCYLA [Suspect]
     Active Substance: ADO-TRASTUZUMAB EMTANSINE
     Dosage: 6 CYCLES
     Route: 042
     Dates: start: 20201118, end: 20210310

REACTIONS (2)
  - Neuropathy peripheral [Unknown]
  - COVID-19 [Unknown]
